FAERS Safety Report 23676860 (Version 1)
Quarter: 2024Q1

REPORT INFORMATION
  Report Type: Spontaneous
  Country: CN (occurrence: None)
  Receive Date: 20240327
  Receipt Date: 20240327
  Transmission Date: 20240409
  Serious: Yes (Hospitalization, Other)
  Sender: FDA-Public Use
  Company Number: 2024A069635

PATIENT
  Age: 48 Year
  Sex: Female
  Weight: 68 kg

DRUGS (1)
  1. DAPAGLIFLOZIN [Suspect]
     Active Substance: DAPAGLIFLOZIN
     Indication: Diabetes mellitus
     Route: 048
     Dates: start: 20240302, end: 20240312

REACTIONS (5)
  - Blood ketone body increased [Recovering/Resolving]
  - Dry mouth [Unknown]
  - Blood glucose increased [Unknown]
  - Dysuria [Recovering/Resolving]
  - Vulvovaginal pruritus [Unknown]

NARRATIVE: CASE EVENT DATE: 20240310
